FAERS Safety Report 6330329-1 (Version None)
Quarter: 2009Q3

REPORT INFORMATION
  Report Type: 
  Country: None (occurrence: None)
  Receive Date: 20090827
  Receipt Date: 20070621
  Transmission Date: 20100115
  Serious: Yes (Other)
  Sender: FDA-Public Use
  Company Number: US-ASTRAZENECA-2006UW24478

PATIENT
  Age: 18956 Day
  Sex: Female
  Weight: 87.5 kg

DRUGS (5)
  1. SEROQUEL [Suspect]
     Indication: DEPRESSION
     Dosage: 25-100 MG
     Route: 048
     Dates: start: 19990916
  2. ZYPREXA [Suspect]
     Dates: start: 19990415
  3. TRAZODONE HCL [Concomitant]
  4. RISPERDAL [Concomitant]
     Dosage: 2-3 MG AT BEDTIME
     Dates: start: 19990603
  5. REMERON [Concomitant]
     Dates: start: 19990624

REACTIONS (4)
  - DIABETES MELLITUS [None]
  - DIABETIC NEUROPATHY [None]
  - NEUROLEPTIC MALIGNANT SYNDROME [None]
  - TYPE 2 DIABETES MELLITUS [None]
